FAERS Safety Report 21470864 (Version 2)
Quarter: 2023Q1

REPORT INFORMATION
  Report Type: Spontaneous
  Country: US (occurrence: US)
  Receive Date: 20221018
  Receipt Date: 20230112
  Transmission Date: 20230418
  Serious: Yes (Other)
  Sender: FDA-Public Use
  Company Number: US-BRISTOL-MYERS SQUIBB COMPANY-2022-120158

PATIENT
  Age: 62 Year
  Sex: Male
  Weight: 40.82 kg

DRUGS (2)
  1. OPDIVO [Suspect]
     Active Substance: NIVOLUMAB
     Indication: Bladder cancer
     Dosage: DOSE : UNAVAILABLE;     FREQ : UNAVAILABLE
     Dates: start: 2018
  2. YERVOY [Suspect]
     Active Substance: IPILIMUMAB
     Indication: Bladder cancer
     Dosage: DOSE : UNAVAILABLE;   FREQ : UNAVAILABLE
     Dates: start: 2018

REACTIONS (7)
  - Illness [Unknown]
  - Myalgia [Unknown]
  - Arthralgia [Unknown]
  - Nausea [Unknown]
  - Cough [Unknown]
  - Balance disorder [Unknown]
  - Metastatic carcinoma of the bladder [Unknown]
